FAERS Safety Report 10873213 (Version 1)
Quarter: 2015Q1

REPORT INFORMATION
  Report Type: Report from Study
  Country: US (occurrence: US)
  Receive Date: 20150227
  Receipt Date: 20150227
  Transmission Date: 20150721
  Serious: Yes (Other)
  Sender: FDA-Public Use
  Company Number: PHEH2015US003434

PATIENT
  Sex: Female

DRUGS (1)
  1. AFINITOR [Suspect]
     Active Substance: EVEROLIMUS
     Indication: COLON CANCER
     Route: 065

REACTIONS (4)
  - Hepatic cancer [Unknown]
  - Second primary malignancy [Unknown]
  - Product use issue [Unknown]
  - Lung neoplasm malignant [Unknown]
